FAERS Safety Report 4465494-4 (Version None)
Quarter: 2004Q3

REPORT INFORMATION
  Report Type: 
  Country: None (occurrence: None)
  Receive Date: 20040929
  Receipt Date: 20040910
  Transmission Date: 20050211
  Serious: Yes (Hospitalization, Other)
  Sender: FDA-Public Use
  Company Number: USA040977940

PATIENT
  Age: 55 Year
  Sex: Female
  Weight: 98 kg

DRUGS (1)
  1. HUMALOG-HUMAN INSULIN (RDNA): 15% LISPRO, 75% NPL (LI [Suspect]
     Indication: DIABETES MELLITUS
     Dosage: 10 U DAY
     Dates: start: 20010101

REACTIONS (7)
  - DIFFICULTY IN WALKING [None]
  - EYE HAEMORRHAGE [None]
  - MACULAR OEDEMA [None]
  - PHARMACEUTICAL PRODUCT COMPLAINT [None]
  - VENOUS OCCLUSION [None]
  - VISUAL ACUITY REDUCED [None]
  - WEIGHT INCREASED [None]
